FAERS Safety Report 5221514-0 (Version None)
Quarter: 2007Q1

REPORT INFORMATION
  Report Type: 
  Country: None (occurrence: None)
  Receive Date: 20070126
  Receipt Date: 20070118
  Transmission Date: 20070707
  Serious: Yes (Other)
  Sender: FDA-Public Use
  Company Number: US-PFIZER INC-2007005598

PATIENT
  Sex: Female
  Weight: 112.9 kg

DRUGS (2)
  1. GEODON [Suspect]
     Indication: BIPOLAR DISORDER
     Dates: start: 20061101, end: 20070113
  2. VITAMINS [Concomitant]

REACTIONS (5)
  - ANXIETY [None]
  - DEPRESSION [None]
  - RESTLESSNESS [None]
  - SUICIDAL IDEATION [None]
  - THINKING ABNORMAL [None]
